FAERS Safety Report 20113744 (Version 2)
Quarter: 2022Q2

REPORT INFORMATION
  Report Type: Spontaneous
  Country: US (occurrence: US)
  Receive Date: 20211125
  Receipt Date: 20220419
  Transmission Date: 20220720
  Serious: No
  Sender: FDA-Public Use
  Company Number: US-GLAXOSMITHKLINE-US2021AMR237345

PATIENT
  Sex: Male

DRUGS (3)
  1. NUCALA [Suspect]
     Active Substance: MEPOLIZUMAB
     Indication: Nasal polyps
     Dosage: UNK
  2. DIFLUCAN [Suspect]
     Active Substance: FLUCONAZOLE
     Indication: Product used for unknown indication
     Dosage: UNK
  3. AMLODIPINE [Suspect]
     Active Substance: AMLODIPINE BESYLATE
     Indication: Blood pressure measurement
     Dosage: UNK

REACTIONS (11)
  - Tongue discomfort [Not Recovered/Not Resolved]
  - Lip dry [Recovering/Resolving]
  - Dry mouth [Recovering/Resolving]
  - Oral mucosal blistering [Not Recovered/Not Resolved]
  - Oral disorder [Not Recovered/Not Resolved]
  - Herpes zoster [Unknown]
  - Epistaxis [Unknown]
  - Back pain [Unknown]
  - Oral pain [Unknown]
  - Off label use [Unknown]
  - Drug ineffective for unapproved indication [Unknown]
